FAERS Safety Report 25226499 (Version 2)
Quarter: 2025Q2

REPORT INFORMATION
  Report Type: Spontaneous
  Country: DE (occurrence: DE)
  Receive Date: 20250422
  Receipt Date: 20250513
  Transmission Date: 20250717
  Serious: Yes (Hospitalization, Other)
  Sender: NOVA LABORATORIES LIMITED
  Company Number: DE-Nova Laboratories Limited-2175382

PATIENT
  Age: 30 Year
  Sex: Male

DRUGS (21)
  1. PURIXAN [Suspect]
     Active Substance: MERCAPTOPURINE
     Indication: Colitis ulcerative
  2. UPADACITINIB [Suspect]
     Active Substance: UPADACITINIB
  3. PREDNISOLONE [Suspect]
     Active Substance: PREDNISOLONE
     Dates: start: 20221219, end: 20221219
  4. PREDNISOLONE [Suspect]
     Active Substance: PREDNISOLONE
     Dates: start: 20221122, end: 20221122
  5. PREDNISOLONE [Suspect]
     Active Substance: PREDNISOLONE
     Dates: start: 20221107, end: 20221107
  6. TOFACITINIB [Suspect]
     Active Substance: TOFACITINIB
  7. OZANIMOD [Suspect]
     Active Substance: OZANIMOD
  8. VEDOLIZUMAB [Suspect]
     Active Substance: VEDOLIZUMAB
  9. USTEKINUMAB [Suspect]
     Active Substance: USTEKINUMAB
  10. GOLIMUMAB [Suspect]
     Active Substance: GOLIMUMAB
  11. ADALIMUMAB [Suspect]
     Active Substance: ADALIMUMAB
  12. AZATHIOPRINE [Suspect]
     Active Substance: AZATHIOPRINE
  13. INFLIXIMAB [Suspect]
     Active Substance: INFLIXIMAB
     Dates: start: 20230102
  14. INFLIXIMAB [Suspect]
     Active Substance: INFLIXIMAB
     Dates: start: 20221219, end: 20221219
  15. INFLIXIMAB [Suspect]
     Active Substance: INFLIXIMAB
     Dates: start: 20221122, end: 20221122
  16. INFLIXIMAB [Suspect]
     Active Substance: INFLIXIMAB
     Dates: start: 20221107, end: 20221107
  17. MESALAMINE [Suspect]
     Active Substance: MESALAMINE
     Dates: start: 2021
  18. MESALAMINE [Suspect]
     Active Substance: MESALAMINE
     Dates: start: 20220703
  19. RISANKIZUMAB [Suspect]
     Active Substance: RISANKIZUMAB
  20. FILGOTINIB [Suspect]
     Active Substance: FILGOTINIB
  21. RITUXIMAB [Suspect]
     Active Substance: RITUXIMAB

REACTIONS (12)
  - Lymphadenopathy [Unknown]
  - Off label use [Unknown]
  - Dermatitis acneiform [Unknown]
  - Eye swelling [Unknown]
  - Pruritus [Unknown]
  - Angiolymphoid hyperplasia with eosinophilia [Unknown]
  - Diplopia [Unknown]
  - Diarrhoea haemorrhagic [Unknown]
  - Swelling face [Unknown]
  - Eosinophilia [Unknown]
  - Jugular vein thrombosis [Unknown]
  - Colitis ulcerative [Unknown]

NARRATIVE: CASE EVENT DATE: 20211012
